FAERS Safety Report 5284857-0 (Version None)
Quarter: 2007Q1

REPORT INFORMATION
  Report Type: 
  Country: None (occurrence: None)
  Receive Date: 20070328
  Receipt Date: 20070313
  Transmission Date: 20070707
  Serious: Yes (Other)
  Sender: FDA-Public Use
  Company Number: S07-CAN-01284-01

PATIENT
  Age: 31 Year
  Sex: Female

DRUGS (4)
  1. CELEXA [Suspect]
     Dosage: 10 MG QD PO
     Route: 048
  2. CYCLOBENZAPRINE HCL [Concomitant]
  3. OXAZEPAM [Concomitant]
  4. RISPERDAL [Concomitant]

REACTIONS (7)
  - AGGRESSION [None]
  - CRYING [None]
  - DEPRESSION [None]
  - PSYCHIATRIC SYMPTOM [None]
  - RESTLESSNESS [None]
  - SUICIDAL IDEATION [None]
  - THINKING ABNORMAL [None]
